FAERS Safety Report 12890463 (Version 1)
Quarter: 2016Q4

REPORT INFORMATION
  Report Type: Spontaneous
  Country: US (occurrence: US)
  Receive Date: 20161027
  Receipt Date: 20161027
  Transmission Date: 20170207
  Serious: No
  Sender: FDA-Public Use
  Company Number: US-JAZZ-2016-US-015557

PATIENT
  Age: 18 Year
  Sex: Female

DRUGS (29)
  1. GLUTATHIONE [Concomitant]
     Active Substance: GLUTATHIONE
  2. IRON [Concomitant]
     Active Substance: IRON
  3. VITAMIN B COMPLEX [Concomitant]
     Active Substance: CYANOCOBALAMIN\DEXPANTHENOL\NIACINAMIDE\PYRIDOXINE HYDROCHLORIDE\RIBOFLAVIN 5^-PHOSPHATE SODIUM\THIAMINE HYDROCHLORIDE\VITAMIN B COMPLEX
  4. ZITHROMAX [Concomitant]
     Active Substance: AZITHROMYCIN DIHYDRATE
  5. CORIOLUS [Concomitant]
  6. L-GLUTAMINE [Concomitant]
  7. URSODIOL. [Concomitant]
     Active Substance: URSODIOL
  8. DETOX [Concomitant]
  9. NYSTATIN. [Concomitant]
     Active Substance: NYSTATIN
  10. ASPIRIN. [Concomitant]
     Active Substance: ASPIRIN
  11. CEFTRIAXONE. [Concomitant]
     Active Substance: CEFTRIAXONE
  12. MILK THISTLE [Concomitant]
     Active Substance: MILK THISTLE
  13. VITAMIN D3 [Concomitant]
     Active Substance: CHOLECALCIFEROL
  14. MULTIVITAMIN [Concomitant]
     Active Substance: VITAMINS
  15. STEVIA [Concomitant]
  16. XYREM [Suspect]
     Active Substance: SODIUM OXYBATE
     Indication: CATAPLEXY
  17. CANDIBACTIN AR [Concomitant]
  18. NALTREXONE HCL [Concomitant]
     Active Substance: NALTREXONE HYDROCHLORIDE
  19. SALINE [Concomitant]
     Active Substance: SODIUM CHLORIDE
  20. SILVER [Concomitant]
     Active Substance: SILVER
  21. VITAMIN B12 [Concomitant]
     Active Substance: CYANOCOBALAMIN
  22. ADRENOL [Concomitant]
  23. XYREM [Suspect]
     Active Substance: SODIUM OXYBATE
     Indication: NARCOLEPSY
     Dosage: 2.25 G, BID
     Route: 048
     Dates: start: 201608
  24. BROMELAIN [Concomitant]
     Active Substance: BROMELAINS
  25. MAGNESIUM GLYCINATE [Concomitant]
     Active Substance: MAGNESIUM GLYCINATE
  26. MEPRON [Concomitant]
     Active Substance: ATOVAQUONE
  27. N-ACETYL-L-CYSTEINE [Concomitant]
     Active Substance: ACETYLCYSTEINE
  28. PROBIOTIC [Concomitant]
     Active Substance: PROBIOTICS NOS
  29. NUVIGIL [Concomitant]
     Active Substance: ARMODAFINIL

REACTIONS (1)
  - Vomiting [Unknown]

NARRATIVE: CASE EVENT DATE: 201608
